FAERS Safety Report 12518615 (Version 1)
Quarter: 2016Q2

REPORT INFORMATION
  Report Type: Spontaneous
  Country: FR (occurrence: FR)
  Receive Date: 20160630
  Receipt Date: 20160630
  Transmission Date: 20160815
  Serious: Yes (Life-Threatening, Hospitalization, Other)
  Sender: FDA-Public Use
  Company Number: FR-GLAXOSMITHKLINE-FR2016GSK093049

PATIENT
  Age: 52 Year
  Sex: Female

DRUGS (25)
  1. SULFARLEM [Concomitant]
     Active Substance: ANETHOLTRITHION
  2. LERCAN [Concomitant]
     Active Substance: LERCANIDIPINE
  3. MIOREL [Concomitant]
     Active Substance: THIOCOLCHICOSIDE
  4. VOLTARENE [Suspect]
     Active Substance: DICLOFENAC SODIUM
     Indication: PRODUCT USED FOR UNKNOWN INDICATION
     Route: 048
  5. MORPHINE SULFATE. [Suspect]
     Active Substance: MORPHINE SULFATE
     Indication: PRODUCT USED FOR UNKNOWN INDICATION
     Dosage: 10 MG, UNK
     Route: 048
  6. XANAX [Concomitant]
     Active Substance: ALPRAZOLAM
  7. DUPHALAC [Concomitant]
     Active Substance: LACTULOSE
  8. OGAST [Concomitant]
     Active Substance: LANSOPRAZOLE
  9. ACUPAN [Concomitant]
     Active Substance: NEFOPAM HYDROCHLORIDE
  10. TAHOR [Concomitant]
     Active Substance: ATORVASTATIN CALCIUM
  11. XYZALL [Concomitant]
     Active Substance: LEVOCETIRIZINE DIHYDROCHLORIDE
  12. GLUCOPHAGE [Concomitant]
     Active Substance: METFORMIN HYDROCHLORIDE
  13. IXEL [Concomitant]
     Active Substance: MILNACIPRAN HYDROCHLORIDE
  14. VENTOLINE [Concomitant]
     Active Substance: ALBUTEROL
  15. METEOSPASMYL [Concomitant]
     Active Substance: ALVERINE CITRATE\DIMETHICONE
  16. RIVOTRIL [Concomitant]
     Active Substance: CLONAZEPAM
  17. ISOPTINE [Concomitant]
     Active Substance: VERAPAMIL HYDROCHLORIDE
  18. SKENAN [Suspect]
     Active Substance: MORPHINE SULFATE
     Indication: PRODUCT USED FOR UNKNOWN INDICATION
     Dosage: 100 MG, UNK
  19. DAFALGAN [Concomitant]
     Active Substance: ACETAMINOPHEN
  20. VESICARE [Concomitant]
     Active Substance: SOLIFENACIN SUCCINATE
  21. AVANDAMET [Concomitant]
     Active Substance: METFORMIN HYDROCHLORIDE\ROSIGLITAZONE MALEATE
  22. FEXOFENADINE [Concomitant]
     Active Substance: FEXOFENADINE\FEXOFENADINE HYDROCHLORIDE
  23. LEVOTHYROX [Concomitant]
     Active Substance: LEVOTHYROXINE
  24. DEROXAT [Concomitant]
     Active Substance: PAROXETINE HYDROCHLORIDE
  25. FLECAINE [Concomitant]
     Active Substance: FLECAINIDE

REACTIONS (5)
  - Coma [Recovered/Resolved]
  - Respiratory acidosis [Recovered/Resolved]
  - Miosis [Recovered/Resolved]
  - Renal failure [Recovered/Resolved]
  - Psychomotor skills impaired [Recovered/Resolved]

NARRATIVE: CASE EVENT DATE: 20160523
